FAERS Safety Report 24702930 (Version 2)
Quarter: 2024Q4

REPORT INFORMATION
  Report Type: Report from Study
  Country: GB (occurrence: GB)
  Receive Date: 20241205
  Receipt Date: 20241226
  Transmission Date: 20250115
  Serious: Yes (Other)
  Sender: ABBVIE
  Company Number: GB-ABBVIE-5993631

PATIENT
  Age: 39 Year
  Sex: Female

DRUGS (3)
  1. HUMIRA [Suspect]
     Active Substance: ADALIMUMAB
     Indication: Psoriatic arthropathy
     Dosage: FORM STRENGTH: 40 MILLIGRAM
     Route: 058
     Dates: end: 2024
  2. HUMIRA [Suspect]
     Active Substance: ADALIMUMAB
     Route: 058
     Dates: start: 2024
  3. CLARITHROMYCIN [Suspect]
     Active Substance: CLARITHROMYCIN
     Indication: Product used for unknown indication
     Route: 065

REACTIONS (28)
  - Joint effusion [Unknown]
  - Pain [Unknown]
  - Blood iron decreased [Not Recovered/Not Resolved]
  - Vitamin D decreased [Not Recovered/Not Resolved]
  - Nasopharyngitis [Recovering/Resolving]
  - Malaise [Unknown]
  - Influenza [Unknown]
  - Pharyngitis [Unknown]
  - Pharyngitis bacterial [Not Recovered/Not Resolved]
  - Hordeolum [Unknown]
  - Viral pharyngitis [Not Recovered/Not Resolved]
  - Psoriatic arthropathy [Unknown]
  - Eyelid rash [Unknown]
  - Oral candidiasis [Recovering/Resolving]
  - Road traffic accident [Not Recovered/Not Resolved]
  - Oropharyngeal discolouration [Not Recovered/Not Resolved]
  - Arthralgia [Not Recovered/Not Resolved]
  - Arthritis [Not Recovered/Not Resolved]
  - Hypotension [Not Recovered/Not Resolved]
  - Spondylitis [Not Recovered/Not Resolved]
  - Urinary tract infection [Recovering/Resolving]
  - Feeling abnormal [Not Recovered/Not Resolved]
  - Joint swelling [Unknown]
  - Nasal congestion [Unknown]
  - Inappropriate schedule of product administration [Not Recovered/Not Resolved]
  - Arthritis [Not Recovered/Not Resolved]
  - Oropharyngeal pain [Unknown]
  - Pain [Unknown]

NARRATIVE: CASE EVENT DATE: 20240101
